FAERS Safety Report 11023932 (Version 2)
Quarter: 2015Q2

REPORT INFORMATION
  Report Type: Spontaneous
  Country: US (occurrence: US)
  Receive Date: 20150413
  Receipt Date: 20150525
  Transmission Date: 20150821
  Serious: No
  Sender: FDA-Public Use
  Company Number: US-JNJFOC-20130808474

PATIENT
  Sex: Female
  Weight: 54.43 kg

DRUGS (5)
  1. LYRICA [Concomitant]
     Active Substance: PREGABALIN
     Indication: LYME DISEASE
     Route: 048
     Dates: start: 201307
  2. LOSARTAN [Concomitant]
     Active Substance: LOSARTAN
     Indication: PULMONARY CONGESTION
     Route: 048
     Dates: start: 2012
  3. WELCHOL [Concomitant]
     Active Substance: COLESEVELAM HYDROCHLORIDE
     Indication: GASTRIC DISORDER
     Route: 048
     Dates: start: 2012
  4. LEVAQUIN [Suspect]
     Active Substance: LEVOFLOXACIN
     Indication: LYME DISEASE
     Route: 048
     Dates: start: 201306
  5. NEXIUM [Concomitant]
     Active Substance: ESOMEPRAZOLE MAGNESIUM
     Indication: GASTROOESOPHAGEAL REFLUX DISEASE
     Route: 048
     Dates: start: 2012

REACTIONS (5)
  - Fatigue [Not Recovered/Not Resolved]
  - Pain [Not Recovered/Not Resolved]
  - Weight bearing difficulty [Not Recovered/Not Resolved]
  - Dyskinesia [Not Recovered/Not Resolved]
  - Abdominal discomfort [Not Recovered/Not Resolved]

NARRATIVE: CASE EVENT DATE: 2013
